FAERS Safety Report 15968732 (Version 1)
Quarter: 2019Q1

REPORT INFORMATION
  Report Type: Spontaneous
  Country: US (occurrence: US)
  Receive Date: 20190215
  Receipt Date: 20190215
  Transmission Date: 20190418
  Serious: Yes (Other)
  Sender: FDA-Public Use
  Company Number: US-PFIZER INC-2019064927

PATIENT
  Age: 6 Year
  Sex: Female

DRUGS (1)
  1. GENOTROPIN MQ [Suspect]
     Active Substance: SOMATROPIN
     Dosage: 0.6 MG, DAILY

REACTIONS (10)
  - Fatigue [Unknown]
  - Speech disorder [Unknown]
  - Weight increased [Unknown]
  - Decreased activity [Unknown]
  - Heart rate increased [Unknown]
  - Mouth breathing [Unknown]
  - Headache [Unknown]
  - Food craving [Unknown]
  - Apnoea [Unknown]
  - Constipation [Unknown]
